FAERS Safety Report 24921708 (Version 3)
Quarter: 2025Q2

REPORT INFORMATION
  Report Type: Spontaneous
  Country: FR (occurrence: FR)
  Receive Date: 20250204
  Receipt Date: 20250422
  Transmission Date: 20250717
  Serious: No
  Sender: PFIZER
  Company Number: FR-PFIZER INC-202500019138

PATIENT
  Age: 63 Year
  Sex: Female

DRUGS (1)
  1. FILGRASTIM [Suspect]
     Active Substance: FILGRASTIM
     Dosage: 1 INJECTION, WEEKLY
     Dates: start: 202412

REACTIONS (2)
  - Device safety feature issue [Unknown]
  - Poor quality device used [Unknown]
